FAERS Safety Report 4924652-2 (Version None)
Quarter: 2006Q1

REPORT INFORMATION
  Report Type: 
  Country: None (occurrence: None)
  Receive Date: 20060222
  Receipt Date: 20060208
  Transmission Date: 20060701
  Serious: Yes (Hospitalization)
  Sender: FDA-Public Use
  Company Number: 2006-137573-NL

PATIENT
  Age: 13 Year
  Sex: Female

DRUGS (2)
  1. MARVELON [Suspect]
     Indication: MENORRHAGIA
     Dosage: DF ORAL
     Route: 048
     Dates: start: 20050701, end: 20051231
  2. MALARONE [Concomitant]

REACTIONS (1)
  - HEPATITIS CHOLESTATIC [None]
